FAERS Safety Report 7341227-9 (Version None)
Quarter: 2011Q1

REPORT INFORMATION
  Report Type: 
  Country: None (occurrence: None)
  Receive Date: 20110309
  Receipt Date: 20110302
  Transmission Date: 20110831
  Serious: Yes (Other)
  Sender: FDA-Public Use
  Company Number: JP-BRISTOL-MYERS SQUIBB COMPANY-15594138

PATIENT
  Age: 81 Year
  Sex: Female

DRUGS (3)
  1. AVASTIN [Suspect]
     Indication: COLON CANCER
     Route: 041
  2. ERBITUX [Suspect]
     Indication: COLON CANCER
     Dosage: 8TH COURSE OF INF
     Route: 041
  3. IRINOTECAN HCL [Suspect]
     Indication: COLON CANCER
     Dosage: STR FROM THE 3 RD COURSE OF ERBITUX INFUSION
     Route: 041

REACTIONS (1)
  - ILEUS [None]
